FAERS Safety Report 12908579 (Version 3)
Quarter: 2017Q1

REPORT INFORMATION
  Report Type: Spontaneous
  Country: US (occurrence: US)
  Receive Date: 20161103
  Receipt Date: 20170105
  Transmission Date: 20170428
  Serious: Yes (Other)
  Sender: FDA-Public Use
  Company Number: US-IMPAX LABORATORIES, INC-2016-IPXL-00845

PATIENT
  Sex: Female
  Weight: 84 kg

DRUGS (14)
  1. AZILECT [Suspect]
     Active Substance: RASAGILINE MESYLATE
     Indication: PRODUCT USED FOR UNKNOWN INDICATION
     Dosage: 1 MG, 4 /DAY; AT 6:30 AM, 11:30 AM, 4:30 PM AND AT BED TIME
     Route: 065
     Dates: start: 20160609, end: 2016
  2. SINEMET [Suspect]
     Active Substance: CARBIDOPA\LEVODOPA
     Indication: PRODUCT USED FOR UNKNOWN INDICATION
     Dosage: 25/100; 1 IF NEEDED IN THE MIDDLE OF NIGHT
     Route: 065
     Dates: start: 2016
  3. RYTARY [Suspect]
     Active Substance: CARBIDOPA\LEVODOPA
     Indication: PARKINSON^S DISEASE
     Dosage: (36.25/145) MG 2 CAPSULES 4/DAY AT 6:30 AM, 11:30 AM, 4:30 PM AND AT BED TIME
     Route: 048
     Dates: start: 20150609, end: 201606
  4. REMERON [Concomitant]
     Active Substance: MIRTAZAPINE
     Indication: PRODUCT USED FOR UNKNOWN INDICATION
     Dosage: 0.5 OF 15 MG AT BED TIME
     Route: 065
     Dates: start: 20160609, end: 2016
  5. MIRAPEX [Concomitant]
     Active Substance: PRAMIPEXOLE DIHYDROCHLORIDE
     Indication: PRODUCT USED FOR UNKNOWN INDICATION
     Dosage: 0.5 OF 0.25 MG, 3 /DAY 6:30 AM, 4:30 PM, AND AT BEDTIME
     Route: 065
     Dates: start: 20160609
  6. TRAZODONE [Concomitant]
     Active Substance: TRAZODONE HYDROCHLORIDE
     Indication: SLEEP DISORDER
     Dosage: 50 MG, BEDTIME
     Route: 065
     Dates: start: 20160628
  7. RYTARY [Suspect]
     Active Substance: CARBIDOPA\LEVODOPA
     Dosage: (36.25/145) MG 2 CAPSULES 5/DAY 6 AM, 10 AM, 2 PM, 6PM AND AT BEDTIME
     Route: 048
     Dates: start: 20160628, end: 2016
  8. RYTARY [Suspect]
     Active Substance: CARBIDOPA\LEVODOPA
     Dosage: 23.75/95MG; EVERY 3-4 HRS; 2 AT 6:30 AM, 9:30 AM, 12:30 AM, 3:30 AM, 6:30 PM AND 3 AT BED TIME
     Route: 048
     Dates: start: 20160915
  9. TRAZODONE [Concomitant]
     Active Substance: TRAZODONE HYDROCHLORIDE
     Dosage: 50 MG, BEDTIME
     Route: 065
     Dates: start: 20160915
  10. AZILECT [Suspect]
     Active Substance: RASAGILINE MESYLATE
     Dosage: 1 MG, 2 AT BEDTIME
     Route: 065
     Dates: start: 20160628, end: 2016
  11. CLONAZEPAM. [Concomitant]
     Active Substance: CLONAZEPAM
     Indication: SLEEP DISORDER
     Dosage: 0.5 OF 0.5 MG,  AT BEDTIME
     Route: 065
     Dates: start: 20160609, end: 201606
  12. CLONAZEPAM. [Concomitant]
     Active Substance: CLONAZEPAM
     Dosage: 0.5 MG; 1 AT BEDTIME
     Route: 065
     Dates: start: 20160628
  13. MELATONIN [Concomitant]
     Active Substance: MELATONIN
     Indication: SLEEP DISORDER
     Dosage: 5 MG X 3; 15 MG, BEDTIME
     Route: 065
     Dates: start: 20160628
  14. REMERON [Concomitant]
     Active Substance: MIRTAZAPINE
     Dosage: 0.5-1 OF 15 MG AT BEDTIME
     Route: 065
     Dates: start: 20160628, end: 2016

REACTIONS (5)
  - Drug effect decreased [Unknown]
  - Tooth fracture [Recovered/Resolved]
  - Drug prescribing error [Unknown]
  - Labelled drug-food interaction medication error [Unknown]
  - Dyskinesia [Not Recovered/Not Resolved]

NARRATIVE: CASE EVENT DATE: 2016
